FAERS Safety Report 24347905 (Version 1)
Quarter: 2024Q3

REPORT INFORMATION
  Report Type: Report from Study
  Country: DE (occurrence: None)
  Receive Date: 20240923
  Receipt Date: 20240923
  Transmission Date: 20241017
  Serious: Yes (Other)
  Sender: ENCUBE ETHICALS
  Company Number: DE-Encube-001326

PATIENT

DRUGS (1)
  1. FLUOROURACIL [Suspect]
     Active Substance: FLUOROURACIL
     Indication: Rectal cancer

REACTIONS (6)
  - Cytopenia [Unknown]
  - Off label use [Unknown]
  - Pain [Unknown]
  - Mucosal inflammation [Unknown]
  - Diarrhoea [Unknown]
  - Prerenal failure [Unknown]
